FAERS Safety Report 7096423-5 (Version None)
Quarter: 2010Q4

REPORT INFORMATION
  Report Type: 
  Country: None (occurrence: None)
  Receive Date: 20101111
  Receipt Date: 20100104
  Transmission Date: 20110411
  Serious: No
  Sender: FDA-Public Use
  Company Number: US-KINGPHARMUSA00001-K200900005

PATIENT
  Sex: Male
  Weight: 77.098 kg

DRUGS (7)
  1. ALTACE [Suspect]
     Indication: HYPERTENSION
     Dosage: 5 MG, QD
     Route: 048
  2. ALTACE [Suspect]
     Dosage: 2.5 MG, QD, ORAL
     Route: 048
  3. CARDIZEM [Suspect]
     Dosage: 120 MG, QOD
     Route: 048
  4. CARDIZEM [Suspect]
     Dosage: 180 MG, QOD
     Route: 048
  5. LIPITOR [Concomitant]
     Indication: BLOOD CHOLESTEROL INCREASED
     Dosage: 25 MG, QD
     Route: 048
  6. COUMADIN [Concomitant]
     Indication: ATRIAL FIBRILLATION
     Dosage: 2.5 MG, QOD
     Route: 048
  7. COUMADIN [Concomitant]
     Dosage: 1.25 MG, QOD
     Route: 048

REACTIONS (7)
  - BLOOD CHOLESTEROL INCREASED [None]
  - BLOOD CREATININE INCREASED [None]
  - BLOOD TRIGLYCERIDES INCREASED [None]
  - BLOOD UREA INCREASED [None]
  - FEELING ABNORMAL [None]
  - RENAL IMPAIRMENT [None]
  - WEIGHT INCREASED [None]
